FAERS Safety Report 9124808 (Version 1)
Quarter: 2013Q1

REPORT INFORMATION
  Report Type: Report from Study
  Country: AU (occurrence: AU)
  Receive Date: 20130116
  Receipt Date: 20130116
  Transmission Date: 20140127
  Serious: Yes (Hospitalization)
  Sender: FDA-Public Use
  Company Number: AU-PFIZER INC-2013014281

PATIENT
  Age: 51 Year
  Sex: Female
  Weight: 69 kg

DRUGS (10)
  1. CARBOPLATIN [Suspect]
     Indication: BREAST CANCER
     Dosage: 760 MG, 3 WEEKLY
     Route: 042
     Dates: start: 20121107
  2. DOCETAXEL [Suspect]
     Indication: BREAST CANCER
     Dosage: 135 MG, 3 WEEKLY
     Route: 042
     Dates: start: 20121107
  3. TRASTUZUMAB [Suspect]
     Indication: BREAST CANCER
     Dosage: 550 MG, EVERY 3 WEEKS
     Route: 042
     Dates: start: 20121107
  4. BLINDED THERAPY [Suspect]
     Indication: BREAST CANCER
     Dosage: UNK
     Route: 042
     Dates: start: 20121107
  5. TEMAZEPAM [Concomitant]
     Dosage: 10 MG, UNK
     Dates: start: 20121101
  6. PICOPREP [Concomitant]
     Dosage: UNK
  7. VENLAFAXINE HYDROCHLORIDE [Concomitant]
     Dosage: 150 MG, UNK
     Dates: start: 20120913
  8. PARACETAMOL [Concomitant]
     Dosage: 1500 MG, UNK
     Dates: start: 20121109
  9. OXYCODONE HYDROCHLORIDE [Concomitant]
     Dosage: 10 MG, UNK
     Dates: start: 20121111
  10. ZOFRAN [Concomitant]
     Dosage: 8 MG, UNK
     Dates: start: 20121108, end: 20121109

REACTIONS (1)
  - Neutropenic colitis [Unknown]
